FAERS Safety Report 6306981-3 (Version None)
Quarter: 2009Q3

REPORT INFORMATION
  Report Type: 
  Country: None (occurrence: None)
  Receive Date: 20090812
  Receipt Date: 20090803
  Transmission Date: 20100115
  Serious: Yes (Life-Threatening, Hospitalization, Disabling)
  Sender: FDA-Public Use
  Company Number: FR-ABBOTT-09P-056-0588920-00

PATIENT
  Sex: Female
  Weight: 102 kg

DRUGS (6)
  1. KALETRA [Suspect]
     Indication: HIV INFECTION
     Route: 048
     Dates: start: 20080201
  2. COUMADIN [Interacting]
     Indication: DRUG USE FOR UNKNOWN INDICATION
     Route: 048
     Dates: start: 20080301, end: 20080401
  3. KIVEXA [Concomitant]
     Indication: HIV INFECTION
     Dates: start: 20080201
  4. EPREX [Concomitant]
     Indication: DRUG USE FOR UNKNOWN INDICATION
     Dates: start: 20080301
  5. TAHOR [Concomitant]
     Indication: DRUG USE FOR UNKNOWN INDICATION
  6. NICARDIPINE HCL [Concomitant]
     Indication: DRUG USE FOR UNKNOWN INDICATION

REACTIONS (2)
  - DRUG INTERACTION [None]
  - HAEMORRHAGIC STROKE [None]
